FAERS Safety Report 8299337 (Version 3)
Quarter: 2015Q1

REPORT INFORMATION
  Report Type: Spontaneous
  Country: US (occurrence: US)
  Receive Date: 20111219
  Receipt Date: 20150313
  Transmission Date: 20150721
  Serious: Yes (Other)
  Sender: FDA-Public Use
  Company Number: US-ROCHE-1022816

PATIENT
  Sex: Male
  Weight: 57.66 kg

DRUGS (1)
  1. ACCUTANE [Suspect]
     Active Substance: ISOTRETINOIN
     Indication: ACNE
     Route: 065
     Dates: start: 1986, end: 1988

REACTIONS (9)
  - Dry eye [Unknown]
  - Irritable bowel syndrome [Unknown]
  - Panic attack [Unknown]
  - Crohn^s disease [Unknown]
  - Emotional distress [Unknown]
  - Inflammatory bowel disease [Unknown]
  - Depression [Unknown]
  - Chapped lips [Unknown]
  - Short-bowel syndrome [Unknown]
